FAERS Safety Report 18511004 (Version 1)
Quarter: 2020Q4

REPORT INFORMATION
  Report Type: Spontaneous
  Country: US (occurrence: US)
  Receive Date: 20201117
  Receipt Date: 20201117
  Transmission Date: 20210114
  Serious: Yes (Life-Threatening)
  Sender: FDA-Public Use
  Company Number: None

PATIENT
  Age: 76 Year
  Sex: Female
  Weight: 70 kg

DRUGS (3)
  1. REMDESIVIR. [Suspect]
     Active Substance: REMDESIVIR
     Indication: COVID-19
     Dosage: ?          OTHER FREQUENCY:200 MG X 1, 100 MG;?
     Route: 042
     Dates: start: 20201112, end: 20201113
  2. REMDESIVIR 200 MG POWDER [Concomitant]
     Dates: start: 20201112, end: 20201112
  3. REMDESIVIR 100 MG LIQUID [Concomitant]
     Dates: start: 20201113, end: 20201113

REACTIONS (2)
  - Hepatic failure [None]
  - Acute kidney injury [None]

NARRATIVE: CASE EVENT DATE: 20201114
